FAERS Safety Report 4264487-X (Version None)
Quarter: 2004Q1

REPORT INFORMATION
  Report Type: 
  Country: None (occurrence: None)
  Receive Date: 20040106
  Receipt Date: 20031224
  Transmission Date: 20041129
  Serious: Yes (Other)
  Sender: FDA-Public Use
  Company Number: US-GLAXOSMITHKLINE-A0491560A

PATIENT
  Age: 43 Year
  Sex: Female

DRUGS (2)
  1. EPOPROSTENOL [Suspect]
     Indication: PULMONARY HYPERTENSION
     Route: 042
     Dates: start: 20000101
  2. BOSENTAN [Suspect]
     Indication: PULMONARY HYPERTENSION
     Dosage: 125MG TWICE PER DAY
     Route: 048
     Dates: start: 20030701

REACTIONS (5)
  - ABORTION INDUCED [None]
  - INTRA-UTERINE DEATH [None]
  - LIVER FUNCTION TEST ABNORMAL [None]
  - MATERNAL DRUGS AFFECTING FOETUS [None]
  - PREGNANCY [None]
